FAERS Safety Report 21476769 (Version 1)
Quarter: 2022Q4

REPORT INFORMATION
  Report Type: Spontaneous
  Country: US (occurrence: US)
  Receive Date: 20221019
  Receipt Date: 20221019
  Transmission Date: 20230112
  Serious: No
  Sender: FDA-Public Use
  Company Number: US-CELLTRION INC.-2021US017901

PATIENT

DRUGS (1)
  1. INFLECTRA [Suspect]
     Active Substance: INFLIXIMAB-DYYB
     Indication: Product used for unknown indication
     Dosage: 100 MG/20 ML (4 VIALS) DIRECTIONS: EVERY 8 WEEKS QUANTITY: 4 VIALS REFILLS: BLANK
     Route: 065

REACTIONS (2)
  - Weight increased [Unknown]
  - Unevaluable event [Unknown]
